FAERS Safety Report 17243788 (Version 1)
Quarter: 2020Q1

REPORT INFORMATION
  Report Type: Spontaneous
  Country: US (occurrence: US)
  Receive Date: 20200107
  Receipt Date: 20200107
  Transmission Date: 20200409
  Serious: No
  Sender: FDA-Public Use
  Company Number: US-ROCHE-2364645

PATIENT

DRUGS (1)
  1. ACTIVASE [Suspect]
     Active Substance: ALTEPLASE
     Indication: THROMBOLYSIS
     Route: 065

REACTIONS (2)
  - Off label use [Unknown]
  - No adverse event [Unknown]
